FAERS Safety Report 12894344 (Version 3)
Quarter: 2016Q4

REPORT INFORMATION
  Report Type: Spontaneous
  Country: JP (occurrence: JP)
  Receive Date: 20161028
  Receipt Date: 20161129
  Transmission Date: 20170207
  Serious: Yes (Hospitalization)
  Sender: FDA-Public Use
  Company Number: JP-PFIZER INC-2016499988

PATIENT
  Age: 2 Year
  Sex: Male

DRUGS (5)
  1. FOSPHENYTOIN SODIUM. [Suspect]
     Active Substance: FOSPHENYTOIN SODIUM
     Indication: SEIZURE
     Dosage: UNK
  2. GLYCEOL [Concomitant]
     Active Substance: GLYCERIN
     Dosage: UNK
     Route: 065
  3. DEXAMETHASONE. [Suspect]
     Active Substance: DEXAMETHASONE
     Indication: SEIZURE
     Dosage: UNK
     Route: 065
  4. MIDAZOLAM [Concomitant]
     Active Substance: MIDAZOLAM\MIDAZOLAM HYDROCHLORIDE
     Indication: SEIZURE
     Dosage: UNK
     Route: 065
  5. EDARAVONE [Concomitant]
     Active Substance: EDARAVONE
     Indication: SEIZURE
     Dosage: UNK
     Route: 065

REACTIONS (1)
  - Pneumonia fungal [Unknown]
